FAERS Safety Report 9421611 (Version 1)
Quarter: 2013Q3

REPORT INFORMATION
  Report Type: Spontaneous
  Country: US (occurrence: US)
  Receive Date: 20130726
  Receipt Date: 20130726
  Transmission Date: 20140515
  Serious: No
  Sender: FDA-Public Use
  Company Number: US-BIOGENIDEC-2013BI068068

PATIENT
  Age: 31 Year
  Sex: Female

DRUGS (1)
  1. TYSABRI [Suspect]
     Indication: MULTIPLE SCLEROSIS
     Route: 042
     Dates: start: 20130516

REACTIONS (19)
  - Migraine [Unknown]
  - Sensation of heaviness [Unknown]
  - Apathy [Unknown]
  - Memory impairment [Not Recovered/Not Resolved]
  - Muscle tightness [Unknown]
  - Gait disturbance [Unknown]
  - Depression [Unknown]
  - Confusional state [Not Recovered/Not Resolved]
  - White blood cell count increased [Unknown]
  - Cognitive disorder [Unknown]
  - Hypophagia [Recovered/Resolved]
  - Mobility decreased [Not Recovered/Not Resolved]
  - Stress [Unknown]
  - Feeling abnormal [Unknown]
  - Fatigue [Not Recovered/Not Resolved]
  - Dizziness [Unknown]
  - Asthenia [Unknown]
  - Pyrexia [Recovered/Resolved]
  - Nasopharyngitis [Not Recovered/Not Resolved]
